FAERS Safety Report 6636257-6 (Version None)
Quarter: 2010Q1

REPORT INFORMATION
  Report Type: 
  Country: None (occurrence: None)
  Receive Date: 20100310
  Receipt Date: 20100304
  Transmission Date: 20100710
  Serious: Yes (Other)
  Sender: FDA-Public Use
  Company Number: 2009-194064-NL

PATIENT
  Age: 32 Year
  Sex: Female
  Weight: 77 kg

DRUGS (2)
  1. IMPLANON [Suspect]
     Indication: CONTRACEPTION
     Dosage: 1 DF;
     Dates: start: 20061030, end: 20090326
  2. IMPLANON [Suspect]

REACTIONS (5)
  - ABDOMINAL PAIN [None]
  - DRUG EXPOSURE DURING PREGNANCY [None]
  - METRORRHAGIA [None]
  - PREGNANCY WITH IMPLANT CONTRACEPTIVE [None]
  - PREMATURE BABY [None]
